FAERS Safety Report 4655397-4 (Version None)
Quarter: 2005Q2

REPORT INFORMATION
  Report Type: 
  Country: None (occurrence: None)
  Receive Date: 20050506
  Receipt Date: 20050427
  Transmission Date: 20051028
  Serious: Yes (Congenital Anomaly)
  Sender: FDA-Public Use
  Company Number: US-ABBOTT-05P-163-0299844-00

PATIENT
  Age: 18 Month

DRUGS (2)
  1. HYDROCODONE BITARTRATE [Suspect]
     Indication: DRUG EXPOSURE DURING PREGNANCY
  2. AMOXICILLIN [Suspect]
     Indication: DRUG EXPOSURE DURING PREGNANCY

REACTIONS (2)
  - DRUG EXPOSURE DURING PREGNANCY [None]
  - HEART DISEASE CONGENITAL [None]
